FAERS Safety Report 5636038-6 (Version None)
Quarter: 2008Q1

REPORT INFORMATION
  Report Type: 
  Country: None (occurrence: None)
  Receive Date: 20080220
  Receipt Date: 20080220
  Transmission Date: 20080703
  Serious: Yes (Life-Threatening, Hospitalization, Disabling)
  Sender: FDA-Public Use
  Company Number: None

PATIENT
  Sex: Female
  Weight: 110.6777 kg

DRUGS (1)
  1. MIRENA [Suspect]
     Indication: CONTRACEPTION
     Dosage: STANDARD 5 YEARS
     Dates: start: 20070201, end: 20080226

REACTIONS (4)
  - IUD MIGRATION [None]
  - MENORRHAGIA [None]
  - PAIN [None]
  - UTERINE RUPTURE [None]
